FAERS Safety Report 6915656-9 (Version None)
Quarter: 2010Q3

REPORT INFORMATION
  Report Type: 
  Country: None (occurrence: None)
  Receive Date: 20100810
  Receipt Date: 20100729
  Transmission Date: 20110219
  Serious: No
  Sender: FDA-Public Use
  Company Number: FR-JNJFOC-20100701614

PATIENT
  Age: 27 Year
  Sex: Male

DRUGS (6)
  1. REMICADE [Suspect]
     Indication: ANKYLOSING SPONDYLITIS
     Route: 042
  2. PARACETAMOL [Concomitant]
  3. LANSOPRAZOLE [Concomitant]
  4. BI-PROFENID [Concomitant]
  5. RIFAMATE [Concomitant]
     Indication: ANTIBIOTIC PROPHYLAXIS
  6. SEGLOR [Concomitant]

REACTIONS (1)
  - LYMPHOCYTOSIS [None]
